FAERS Safety Report 19114693 (Version 1)
Quarter: 2021Q2

REPORT INFORMATION
  Report Type: Spontaneous
  Country: US (occurrence: US)
  Receive Date: 20210408
  Receipt Date: 20210408
  Transmission Date: 20210717
  Serious: No
  Sender: FDA-Public Use
  Company Number: US-PERRIGO-20US005219

PATIENT
  Age: 65 Year
  Sex: Male
  Weight: 83.9 kg

DRUGS (5)
  1. BENICAR [Concomitant]
     Active Substance: OLMESARTAN MEDOXOMIL
     Indication: HYPERTENSION
     Dosage: UNKNOWN, UNKNOWN
     Route: 048
     Dates: start: 2010
  2. PRILOSEC [Concomitant]
     Active Substance: OMEPRAZOLE MAGNESIUM
     Indication: HIATUS HERNIA
     Dosage: UNKNOWN, UNKNOWN
     Route: 048
     Dates: start: 2019
  3. LIPITOR [Concomitant]
     Active Substance: ATORVASTATIN CALCIUM
     Indication: BLOOD CHOLESTEROL INCREASED
     Dosage: UNKNOWN, UNKNOWN
     Route: 048
     Dates: start: 2010
  4. PSEUDOEPHEDRINE HYDROCHLORIDE. [Suspect]
     Active Substance: PSEUDOEPHEDRINE HYDROCHLORIDE
     Indication: MIDDLE EAR EFFUSION
     Dosage: 120 MG, BID
     Route: 048
     Dates: start: 20200405, end: 20200405
  5. PSEUDOEPHEDRINE HYDROCHLORIDE. [Suspect]
     Active Substance: PSEUDOEPHEDRINE HYDROCHLORIDE
     Dosage: 120 MG, THREE TIMES
     Route: 048
     Dates: start: 20200406, end: 20200406

REACTIONS (3)
  - Insomnia [Recovered/Resolved]
  - Accidental overdose [Recovered/Resolved]
  - Drug ineffective for unapproved indication [Unknown]

NARRATIVE: CASE EVENT DATE: 20200405
